FAERS Safety Report 7213195-1 (Version None)
Quarter: 2011Q1

REPORT INFORMATION
  Report Type: 
  Country: None (occurrence: None)
  Receive Date: 20110106
  Receipt Date: 20101230
  Transmission Date: 20110831
  Serious: Yes (Death, Other)
  Sender: FDA-Public Use
  Company Number: ID-ROCHE-747767

PATIENT
  Age: 13 Year
  Sex: Female
  Weight: 37 kg

DRUGS (5)
  1. OSELTAMIVIR [Suspect]
     Indication: AVIAN INFLUENZA
     Dosage: INCOMPLETE COURSE- DEATH
     Route: 065
     Dates: start: 20100623, end: 20100624
  2. FUROSEMIDE [Concomitant]
  3. CHLORAMPHENICOL [Concomitant]
     Dosage: INCOMPLETE COURSE: DEATH
     Dates: start: 20100623, end: 20100624
  4. METHYLPREDNISOLONE [Concomitant]
     Dosage: INCOMPLETE COURSE: DEATH
     Dates: start: 20100623, end: 20100624
  5. AMPICILLIN [Concomitant]
     Dosage: DRUG NAME ^AMPHICILLIN^, INCOMPLETE COURSE: DEATH
     Dates: start: 20100623, end: 20100624

REACTIONS (3)
  - RESPIRATORY FAILURE [None]
  - PNEUMONIA [None]
  - ACUTE RESPIRATORY DISTRESS SYNDROME [None]
